FAERS Safety Report 8129918-3 (Version None)
Quarter: 2012Q1

REPORT INFORMATION
  Report Type: 
  Country: None (occurrence: None)
  Receive Date: 20120210
  Receipt Date: 20120207
  Transmission Date: 20120608
  Serious: Yes (Hospitalization)
  Sender: FDA-Public Use
  Company Number: ES-ROCHE-1030118

PATIENT
  Sex: Female
  Weight: 61 kg

DRUGS (6)
  1. ENOXAPARINE SODIQUE [Concomitant]
     Indication: PROPHYLAXIS
     Route: 058
     Dates: start: 20111221
  2. XELODA [Suspect]
     Indication: PANCREATIC CARCINOMA
     Route: 048
     Dates: start: 20111221, end: 20120110
  3. ATORVASTATIN CALCIUM [Concomitant]
     Indication: HYPERCHOLESTEROLAEMIA
     Route: 048
  4. INSULIN [Concomitant]
     Indication: DIABETES MELLITUS
     Route: 058
     Dates: start: 20120104
  5. GEMCITABINE HYDROCHLORIDE [Suspect]
     Indication: PANCREATIC CARCINOMA
     Dosage: 1580 MG
     Route: 042
     Dates: start: 20111221, end: 20120110
  6. TARCEVA [Suspect]
     Indication: PANCREATIC CARCINOMA
     Route: 048
     Dates: start: 20111221, end: 20120110

REACTIONS (1)
  - MUCOSAL INFLAMMATION [None]
